FAERS Safety Report 5150718-0 (Version None)
Quarter: 2006Q4

REPORT INFORMATION
  Report Type: 
  Country: None (occurrence: None)
  Receive Date: 20061114
  Receipt Date: 20061108
  Transmission Date: 20070319
  Serious: Yes (Death)
  Sender: FDA-Public Use
  Company Number: 2006PK02303

PATIENT
  Age: 71 Year
  Sex: Female
  Weight: 62 kg

DRUGS (11)
  1. SEROQUEL [Suspect]
     Indication: DELIRIUM
     Dosage: 100-300 MG
     Route: 048
     Dates: start: 20060504, end: 20060628
  2. SEROQUEL [Suspect]
     Route: 048
     Dates: start: 20060629, end: 20060704
  3. SEROQUEL [Suspect]
     Route: 048
     Dates: start: 20060705, end: 20060711
  4. SEROQUEL [Suspect]
     Route: 048
     Dates: start: 20060712, end: 20060721
  5. SEROQUEL [Suspect]
     Route: 048
     Dates: start: 20060722, end: 20060802
  6. SEROQUEL [Suspect]
     Route: 048
     Dates: start: 20060803, end: 20060805
  7. BELOC ZOK [Interacting]
     Route: 048
     Dates: start: 20060101, end: 20060805
  8. RISPERDAL [Interacting]
     Indication: DELIRIUM
     Route: 048
     Dates: start: 20060602, end: 20060714
  9. RISPERDAL [Interacting]
     Route: 048
     Dates: start: 20060715, end: 20060725
  10. RISPERDAL [Interacting]
     Route: 048
     Dates: start: 20060726, end: 20060805
  11. TRIAMPUR [Concomitant]
     Dates: start: 20060501, end: 20060805

REACTIONS (2)
  - CARDIAC ARREST [None]
  - DRUG INTERACTION [None]
